FAERS Safety Report 12300149 (Version 1)
Quarter: 2016Q2

REPORT INFORMATION
  Report Type: Spontaneous
  Country: US (occurrence: None)
  Receive Date: 20160422
  Receipt Date: 20160422
  Transmission Date: 20160815
  Serious: No
  Sender: FDA-Public Use
  Company Number: None

PATIENT
  Age: 58 Year
  Sex: Female

DRUGS (1)
  1. SOVALDI [Suspect]
     Active Substance: SOFOSBUVIR
     Indication: HEPATITIS C

REACTIONS (7)
  - Agitation [None]
  - Irritability [None]
  - Arthralgia [None]
  - Migraine [None]
  - Insomnia [None]
  - Skin discolouration [None]
  - Dyspepsia [None]

NARRATIVE: CASE EVENT DATE: 20160421
